FAERS Safety Report 8105065-1 (Version None)
Quarter: 2012Q1

REPORT INFORMATION
  Report Type: 
  Country: None (occurrence: None)
  Receive Date: 20120201
  Receipt Date: 20120124
  Transmission Date: 20120608
  Serious: Yes (Hospitalization)
  Sender: FDA-Public Use
  Company Number: US-BAYER-2011-074935

PATIENT
  Age: 22 Year
  Sex: Female
  Weight: 76.19 kg

DRUGS (5)
  1. ZITHROMAX [Concomitant]
     Dosage: UNK
     Route: 048
     Dates: start: 20100723, end: 20100728
  2. AUGMENTIN '125' [Concomitant]
     Dosage: UNK UNK, BID
     Route: 048
     Dates: start: 20100727, end: 20100806
  3. YAZ [Suspect]
     Dosage: UNK
     Route: 048
     Dates: start: 20100801, end: 20101004
  4. ARMODAFINIL [Concomitant]
     Dosage: UNK UNK, QD
     Route: 048
     Dates: start: 20100723, end: 20100730
  5. SINGULAIR [Concomitant]
     Dosage: UNK UNK, QD
     Route: 048
     Dates: start: 20100723, end: 20100802

REACTIONS (5)
  - MENTAL DISORDER [None]
  - DYSPNOEA [None]
  - INJURY [None]
  - PAIN [None]
  - PULMONARY EMBOLISM [None]
